FAERS Safety Report 7956425-0 (Version None)
Quarter: 2011Q4

REPORT INFORMATION
  Report Type: 
  Country: None (occurrence: None)
  Receive Date: 20111205
  Receipt Date: 20111123
  Transmission Date: 20120403
  Serious: Yes (Hospitalization)
  Sender: FDA-Public Use
  Company Number: MX-SANOFI-AVENTIS-2011SA077286

PATIENT
  Age: 58 Year
  Sex: Male

DRUGS (2)
  1. RAMIPRIL [Suspect]
     Route: 048
  2. PLAVIX [Suspect]
     Route: 048

REACTIONS (1)
  - HYDROCELE [None]
